FAERS Safety Report 5589263-7 (Version None)
Quarter: 2008Q1

REPORT INFORMATION
  Report Type: 
  Country: None (occurrence: None)
  Receive Date: 20080114
  Receipt Date: 20080104
  Transmission Date: 20080703
  Serious: Yes (Other)
  Sender: FDA-Public Use
  Company Number: PHEH2008US00594

PATIENT
  Age: 67 Year
  Sex: Male
  Weight: 100.68 kg

DRUGS (8)
  1. TEKTURNA [Suspect]
     Indication: HYPERTENSION
     Dosage: 300 MG, QD
     Route: 065
     Dates: start: 20070409, end: 20071231
  2. AVALIDE [Concomitant]
  3. IMDUR [Concomitant]
  4. NORVASC [Concomitant]
  5. SOTALOL HYDROCHLORIDE [Suspect]
     Indication: ATRIAL FIBRILLATION
     Dosage: UNK, UNK
     Route: 065
     Dates: start: 20061201
  6. GLUCOPHAGE [Concomitant]
  7. SPIRIVA [Concomitant]
  8. FENOFIBRATE [Concomitant]

REACTIONS (4)
  - DRUG INTERACTION [None]
  - FEELING ABNORMAL [None]
  - HEADACHE [None]
  - HEART RATE DECREASED [None]
